FAERS Safety Report 21632752 (Version 1)
Quarter: 2022Q4

REPORT INFORMATION
  Report Type: Spontaneous
  Country: US (occurrence: US)
  Receive Date: 20221123
  Receipt Date: 20221123
  Transmission Date: 20230113
  Serious: No
  Sender: FDA-Public Use
  Company Number: US-BRISTOL-MYERS SQUIBB COMPANY-2022-141970

PATIENT
  Age: 71 Year
  Sex: Female
  Weight: 92.53 kg

DRUGS (1)
  1. POMALYST [Suspect]
     Active Substance: POMALIDOMIDE
     Indication: Plasma cell myeloma
     Dosage: 4 MILLIGRAM, 3W 1W OFF
     Route: 048
     Dates: start: 20221028

REACTIONS (1)
  - Feeling abnormal [Recovering/Resolving]
